FAERS Safety Report 9820127 (Version 1)
Quarter: 2013Q4

REPORT INFORMATION
  Report Type: Spontaneous
  Country: PR (occurrence: None)
  Receive Date: 20131017
  Receipt Date: 20131017
  Transmission Date: 20140711
  Serious: Yes (Other)
  Sender: FDA-Public Use
  Company Number: 2013GMK005226

PATIENT
  Age: 47 Year
  Sex: Male

DRUGS (2)
  1. GABAPENTIN [Suspect]
     Indication: NEURALGIA
  2. GABAPENTIN [Suspect]
     Indication: SUPPORTIVE CARE

REACTIONS (4)
  - Abnormal behaviour [None]
  - Somnambulism [None]
  - Memory impairment [None]
  - Quality of life decreased [None]
